FAERS Safety Report 19081507 (Version 1)
Quarter: 2021Q2

REPORT INFORMATION
  Report Type: Spontaneous
  Country: US (occurrence: US)
  Receive Date: 20210401
  Receipt Date: 20210401
  Transmission Date: 20210717
  Serious: No
  Sender: FDA-Public Use
  Company Number: US-ORGANON-O2103USA003299

PATIENT
  Age: 27 Year
  Sex: Female
  Weight: 72.57 kg

DRUGS (2)
  1. NEXPLANON [Suspect]
     Active Substance: ETONOGESTREL
     Dosage: 1 IMPLANT, 68 MG
     Route: 059
     Dates: start: 201406
  2. NEXPLANON [Suspect]
     Active Substance: ETONOGESTREL
     Dosage: 1 IMPLANT, OPPOSITE ARM
     Route: 059
     Dates: start: 2017, end: 202009

REACTIONS (7)
  - Incorrect product administration duration [Unknown]
  - Device issue [Not Recovered/Not Resolved]
  - No adverse event [Unknown]
  - Device placement issue [Unknown]
  - Complication associated with device [Recovered/Resolved]
  - Device use issue [Unknown]
  - Overdose [Unknown]

NARRATIVE: CASE EVENT DATE: 2017
